FAERS Safety Report 8240399-1 (Version None)
Quarter: 2012Q1

REPORT INFORMATION
  Report Type: 
  Country: None (occurrence: None)
  Receive Date: 20120328
  Receipt Date: 20120320
  Transmission Date: 20120608
  Serious: Yes (Other)
  Sender: FDA-Public Use
  Company Number: DE-ROCHE-1010027

PATIENT
  Sex: Female

DRUGS (5)
  1. LUCENTIS [Suspect]
     Route: 050
     Dates: start: 20110701
  2. LUCENTIS [Suspect]
     Indication: PRODUCT USED FOR UNKNOWN INDICATION
     Route: 050
     Dates: start: 20110601, end: 20110701
  3. JANUMET [Concomitant]
  4. PROTAPHANE [Concomitant]
  5. METHOTREXATE [Concomitant]

REACTIONS (3)
  - DERMATITIS ALLERGIC [None]
  - INAPPROPRIATE SCHEDULE OF DRUG ADMINISTRATION [None]
  - RHEUMATOID ARTHRITIS [None]
